FAERS Safety Report 8838079 (Version 1)
Quarter: 2012Q4

REPORT INFORMATION
  Report Type: 
  Country: TR (occurrence: TR)
  Receive Date: 20121012
  Receipt Date: 20121012
  Transmission Date: 20130627
  Serious: Yes (Hospitalization)
  Sender: FDA-Public Use
  Company Number: TR-TEVA-362699ISR

PATIENT
  Age: 60 Year
  Sex: Female

DRUGS (3)
  1. VINCRISTINE [Suspect]
     Indication: MULTIPLE MYELOMA
     Route: 065
  2. DOXORUBICIN [Concomitant]
     Indication: MULTIPLE MYELOMA
     Route: 065
  3. DEXAMETHASONE [Concomitant]
     Indication: MULTIPLE MYELOMA
     Route: 065

REACTIONS (5)
  - Acute myocardial infarction [Recovering/Resolving]
  - Atrioventricular block complete [Unknown]
  - Electrocardiogram ST segment elevation [Unknown]
  - Acute coronary syndrome [Unknown]
  - Bundle branch block right [Unknown]
